FAERS Safety Report 18122810 (Version 1)
Quarter: 2020Q3

REPORT INFORMATION
  Report Type: Spontaneous
  Country: US (occurrence: US)
  Receive Date: 20200806
  Receipt Date: 20200806
  Transmission Date: 20201103
  Serious: Yes (Disabling)
  Sender: FDA-Public Use
  Company Number: None

PATIENT
  Age: 54 Year
  Sex: Female
  Weight: 78.75 kg

DRUGS (5)
  1. CENTRUM SILVER [Concomitant]
     Active Substance: MINERALS\VITAMINS
  2. BIOTIN [Concomitant]
     Active Substance: BIOTIN
  3. ST JOSEPHS ADULT ASPIRIN [Concomitant]
  4. CALCIUM [Concomitant]
     Active Substance: CALCIUM
  5. DESMOPRESSIN ACETATE 10MCG/0.1ML [Suspect]
     Active Substance: DESMOPRESSIN ACETATE
     Indication: DIABETES INSIPIDUS
     Route: 055
     Dates: start: 20200804, end: 20200806

REACTIONS (3)
  - Dyspnoea [None]
  - Feeling hot [None]
  - Paraesthesia [None]

NARRATIVE: CASE EVENT DATE: 20200805
